FAERS Safety Report 7465699 (Version 2)
Quarter: 2017Q1

REPORT INFORMATION
  Report Type: Report from Study
  Country: FR (occurrence: FR)
  Receive Date: 20100712
  Receipt Date: 20170316
  Transmission Date: 20170429
  Serious: Yes (Hospitalization)
  Sender: FDA-Public Use
  Company Number: FR-AMGEN-KDC422181

PATIENT
  Age: 42 Year
  Sex: Female
  Weight: 63 kg

DRUGS (10)
  1. FLUOROURACIL. [Suspect]
     Active Substance: FLUOROURACIL
     Indication: INVASIVE DUCTAL BREAST CARCINOMA
     Dosage: 865 MG, UNK
     Route: 065
     Dates: start: 20100511
  2. CYCLOPHOSPHAMIDE. [Suspect]
     Active Substance: CYCLOPHOSPHAMIDE
     Indication: INVASIVE DUCTAL BREAST CARCINOMA
     Dosage: 865 MG, UNK
     Route: 065
     Dates: start: 20100511
  3. EPIRUBICIN [Suspect]
     Active Substance: EPIRUBICIN
     Indication: INVASIVE DUCTAL BREAST CARCINOMA
     Dosage: 175 MG, UNK
     Route: 065
     Dates: start: 20100511
  4. BICARBONATE [Concomitant]
     Active Substance: BICARBONATE ION
     Dosage: UNK UNK, UNK
     Dates: start: 20100511
  5. PANITUMUMAB [Suspect]
     Active Substance: PANITUMUMAB
     Indication: INVASIVE DUCTAL BREAST CARCINOMA
     Dosage: 565 MG, UNK
     Route: 065
     Dates: start: 20100511
  6. ZOPHREN [Concomitant]
     Active Substance: ONDANSETRON
     Dosage: UNK UNK, UNK
     Dates: start: 20100511
  7. CETYLPYRIDINIUM CHLORIDE. [Concomitant]
     Active Substance: CETYLPYRIDINIUM CHLORIDE
     Dosage: UNK UNK, UNK
     Dates: start: 20100511
  8. DOXYCYCLINE. [Concomitant]
     Active Substance: DOXYCYCLINE
     Dosage: 200 MG, UNK
     Dates: start: 20100512
  9. CHLOROBUTANOL/POLYVINYL ALCOHOL [Concomitant]
     Dosage: UNK UNK, UNK
     Dates: start: 20100511
  10. PREDNISONE. [Concomitant]
     Active Substance: PREDNISONE
     Dosage: UNK UNK, UNK
     Dates: start: 20100511

REACTIONS (1)
  - Febrile bone marrow aplasia [Recovered/Resolved]

NARRATIVE: CASE EVENT DATE: 20100523
